FAERS Safety Report 14668251 (Version 6)
Quarter: 2018Q3

REPORT INFORMATION
  Report Type: Report from Study
  Country: None (occurrence: US)
  Receive Date: 20180322
  Receipt Date: 20180820
  Transmission Date: 20181010
  Serious: Yes (Hospitalization, Other)
  Sender: FDA-Public Use
  Company Number: US-ABBVIE-18K-163-2295010-00

PATIENT
  Age: 58 Year
  Sex: Male
  Weight: 102.6 kg

DRUGS (1)
  1. HUMIRA [Suspect]
     Active Substance: ADALIMUMAB
     Indication: CROHN^S DISEASE
     Route: 058
     Dates: start: 201612, end: 201805

REACTIONS (15)
  - Blood iron decreased [Recovering/Resolving]
  - Hyposmia [Not Recovered/Not Resolved]
  - Frequent bowel movements [Not Recovered/Not Resolved]
  - Dysgeusia [Not Recovered/Not Resolved]
  - Haemoglobin decreased [Recovering/Resolving]
  - Amnesia [Not Recovered/Not Resolved]
  - Epistaxis [Not Recovered/Not Resolved]
  - Joint range of motion decreased [Recovering/Resolving]
  - Diarrhoea [Not Recovered/Not Resolved]
  - Muscle rupture [Unknown]
  - Intestinal resection [Unknown]
  - Musculoskeletal pain [Recovering/Resolving]
  - Dizziness [Unknown]
  - Drug ineffective [Unknown]
  - Rotator cuff syndrome [Recovering/Resolving]

NARRATIVE: CASE EVENT DATE: 2017
